FAERS Safety Report 7436972-0 (Version None)
Quarter: 2011Q2

REPORT INFORMATION
  Report Type: 
  Country: None (occurrence: None)
  Receive Date: 20110418
  Receipt Date: 20110404
  Transmission Date: 20111010
  Serious: Yes (Hospitalization, Other)
  Sender: FDA-Public Use
  Company Number: 2011001565

PATIENT
  Age: 72 Year
  Sex: Female

DRUGS (1)
  1. TARCEVA [Suspect]
     Indication: OESOPHAGEAL CARCINOMA
     Dosage: (150 MG, QD), ORAL
     Route: 048

REACTIONS (4)
  - GASTROINTESTINAL TUBE INSERTION [None]
  - GENERAL PHYSICAL HEALTH DETERIORATION [None]
  - MENTAL STATUS CHANGES [None]
  - PYREXIA [None]
